FAERS Safety Report 5233774-0 (Version None)
Quarter: 2007Q1

REPORT INFORMATION
  Report Type: 
  Country: None (occurrence: None)
  Receive Date: 20070208
  Receipt Date: 20070129
  Transmission Date: 20070707
  Serious: Yes (Hospitalization)
  Sender: FDA-Public Use
  Company Number: DE-ROCHE-480374

PATIENT
  Age: 42 Year
  Sex: Female
  Weight: 56 kg

DRUGS (7)
  1. PEG-INTERFERON ALFA 2A (RO 25-8310) [Suspect]
     Indication: HEPATITIS C
     Dosage: DOSE ALSO REPORTED AS 25.7143 MCG.
     Route: 058
     Dates: start: 20070108
  2. PEG-INTERFERON ALFA 2A (RO 25-8310) [Suspect]
     Dosage: DOSE WAS REDUCED.
     Route: 058
  3. RIBAVIRIN [Suspect]
     Indication: HEPATITIS C
     Route: 048
     Dates: start: 20070108
  4. VX-950 [Suspect]
     Indication: HEPATITIS C
     Route: 048
     Dates: start: 20070108
  5. METOCLOPRAMIDE [Concomitant]
     Indication: NAUSEA
     Route: 048
     Dates: start: 20070111
  6. BLOPRESS PLUS [Concomitant]
     Dosage: DOSAGE REPORTED AS 16/26 MG.
     Route: 048
     Dates: start: 20041115
  7. BISOPROLOL FUMARATE [Concomitant]
     Route: 048
     Dates: start: 20041115

REACTIONS (2)
  - EMOTIONAL DISTRESS [None]
  - FATIGUE [None]
